FAERS Safety Report 8933595 (Version 2)
Quarter: 2012Q4

REPORT INFORMATION
  Report Type: 
  Country: IT (occurrence: IT)
  Receive Date: 20121129
  Receipt Date: 20121231
  Transmission Date: 20130627
  Serious: Yes (Hospitalization)
  Sender: FDA-Public Use
  Company Number: IT-ABBOTT-12P-083-1012139-00

PATIENT
  Age: 8 Year
  Sex: Male

DRUGS (2)
  1. DEPAKINE CHRONO [Suspect]
     Indication: PETIT MAL EPILEPSY
     Route: 048
     Dates: start: 20121004
  2. BIAXIN [Interacting]
     Indication: BRONCHITIS
     Dosage: 1 gram(s)
     Route: 048
     Dates: start: 20121112, end: 20121115

REACTIONS (2)
  - Drug interaction [Unknown]
  - Petit mal epilepsy [Recovering/Resolving]
